FAERS Safety Report 4991512-0 (Version None)
Quarter: 2006Q2

REPORT INFORMATION
  Report Type: 
  Country: None (occurrence: None)
  Receive Date: 20060502
  Receipt Date: 20060413
  Transmission Date: 20061013
  Serious: Yes (Death, Life-Threatening, Hospitalization)
  Sender: FDA-Public Use
  Company Number: 2006-00696

PATIENT
  Age: 58 Year
  Sex: Female
  Weight: 43 kg

DRUGS (14)
  1. VELCADE [Suspect]
     Indication: MULTIPLE MYELOMA
     Dosage: 1.30 MG/M2, INTRAVENOUS
     Route: 042
     Dates: start: 20060113, end: 20060320
  2. DOXIL [Suspect]
     Indication: MULTIPLE MYELOMA
     Dosage: 30.00 MG/M2, INTRAVENOUS
     Route: 042
     Dates: start: 20060116, end: 20060313
  3. KYTRIL [Concomitant]
  4. MAXOLON [Concomitant]
  5. LASIX [Concomitant]
  6. AREDIA [Concomitant]
  7. CLARITHROMYCIN [Concomitant]
  8. ACYCLOVIR [Concomitant]
  9. TRAMADOL HCL [Concomitant]
  10. ANAREX (PARACETAMOL, ORPHENADRINE CITRATE) [Concomitant]
  11. GABAPENTIN [Concomitant]
  12. CHLORHEXIDINE [Concomitant]
  13. NYSTATIN [Concomitant]
  14. NORMAL SALINE [Concomitant]

REACTIONS (20)
  - CIRCULATORY COLLAPSE [None]
  - COMPUTERISED TOMOGRAM ABNORMAL [None]
  - CONVULSION [None]
  - DIALYSIS [None]
  - HERPES ZOSTER [None]
  - HYPOTENSION [None]
  - ISCHAEMIC CEREBRAL INFARCTION [None]
  - LOSS OF CONSCIOUSNESS [None]
  - MULTI-ORGAN FAILURE [None]
  - MYOCARDIAL ISCHAEMIA [None]
  - NEUTROPENIC SEPSIS [None]
  - NEUTROPHIL PERCENTAGE INCREASED [None]
  - PERFORMANCE STATUS DECREASED [None]
  - PLATELET COUNT DECREASED [None]
  - PNEUMONIA [None]
  - RENAL FAILURE [None]
  - SEPTIC EMBOLUS [None]
  - SEPTIC SHOCK [None]
  - TACHYPNOEA [None]
  - TROPONIN T INCREASED [None]
